FAERS Safety Report 5909551-1 (Version None)
Quarter: 2008Q4

REPORT INFORMATION
  Report Type: 
  Country: None (occurrence: None)
  Receive Date: 20081002
  Receipt Date: 20080926
  Transmission Date: 20090506
  Serious: Yes (Life-Threatening, Hospitalization, Other)
  Sender: FDA-Public Use
  Company Number: 2008SP018508

PATIENT
  Age: 56 Year
  Sex: Male
  Weight: 102.2 kg

DRUGS (5)
  1. PEG-INTRON [Suspect]
     Indication: DRUG USE FOR UNKNOWN INDICATION
     Dates: start: 20080711
  2. RIBAVIRIN [Suspect]
     Indication: DRUG USE FOR UNKNOWN INDICATION
     Dosage: PO
     Route: 048
     Dates: start: 20080711, end: 20080814
  3. NOVOLIN [Concomitant]
  4. FUROSEMIDE [Concomitant]
  5. SPIRONOLACTONE [Concomitant]

REACTIONS (16)
  - ASTHENIA [None]
  - CARDIAC ARREST [None]
  - CARDIAC FAILURE [None]
  - EJECTION FRACTION DECREASED [None]
  - ELECTROMECHANICAL DISSOCIATION [None]
  - ENCEPHALOPATHY [None]
  - HAEMOGLOBIN DECREASED [None]
  - HYPOTENSION [None]
  - LIVER TRANSPLANT [None]
  - MYOCARDIAL INFARCTION [None]
  - POOR VENOUS ACCESS [None]
  - PULMONARY HYPERTENSION [None]
  - STRESS CARDIOMYOPATHY [None]
  - TACHYCARDIA [None]
  - TROPONIN INCREASED [None]
  - URINARY TRACT INFECTION [None]
